FAERS Safety Report 4514581-0 (Version None)
Quarter: 2004Q3

REPORT INFORMATION
  Report Type: 
  Country: None (occurrence: None)
  Receive Date: 20040927
  Receipt Date: 20040730
  Transmission Date: 20050211
  Serious: No
  Sender: FDA-Public Use
  Company Number: US085679

PATIENT
  Sex: Female

DRUGS (1)
  1. NEULASTA [Suspect]

REACTIONS (4)
  - BONE PAIN [None]
  - CHEST DISCOMFORT [None]
  - ERYTHEMA [None]
  - HEADACHE [None]
